FAERS Safety Report 9416168 (Version 1)
Quarter: 2013Q3

REPORT INFORMATION
  Report Type: Spontaneous
  Country: AU (occurrence: None)
  Receive Date: 20130718
  Receipt Date: 20130718
  Transmission Date: 20140515
  Serious: Yes (Hospitalization)
  Sender: FDA-Public Use
  Company Number: 2013000169

PATIENT
  Age: 41 Year
  Sex: Female

DRUGS (12)
  1. ACEON (PERINDOPRIL ERBUMINE) TABLET, 8MG [Suspect]
     Indication: PRODUCT USED FOR UNKNOWN INDICATION
     Route: 048
     Dates: end: 20130220
  2. ASPIRIN (ASPIRIN) [Concomitant]
  3. ATENOLOL (ATENOLOL) [Concomitant]
  4. ATORVASTATIN (ATORVASTATIN) [Concomitant]
  5. CALCITRIOL (CALCITRIOL) [Concomitant]
  6. CALCIUM (CALCIUM) [Concomitant]
  7. CLOPIDOGREL (CLOPIDOGREL) [Concomitant]
  8. DARBEPOETIN ALFA (DARBEPOETIN ALFA) [Concomitant]
  9. ITRON POLYMALTOSE (IRON POLYMATLTOSE) [Concomitant]
  10. MAGNESIUM (MAGNESIUM) [Concomitant]
  11. PARACETAMOL (PARACETAMOL) [Concomitant]
  12. THRYOXINE SODIUM (THRYROXINE SODIUM) [Concomitant]

REACTIONS (6)
  - Drooling [None]
  - Palatal oedema [None]
  - Palatal oedema [None]
  - Oropharyngeal pain [None]
  - Angioedema [None]
  - Dysphagia [None]
